FAERS Safety Report 21266260 (Version 3)
Quarter: 2022Q4

REPORT INFORMATION
  Report Type: Spontaneous
  Country: JP (occurrence: JP)
  Receive Date: 20220829
  Receipt Date: 20221118
  Transmission Date: 20230113
  Serious: Yes (Death, Other)
  Sender: FDA-Public Use
  Company Number: JP-PFIZER INC-PV202200051294

PATIENT
  Age: 8 Decade
  Sex: Female
  Weight: 40 kg

DRUGS (2)
  1. LORBRENA [Suspect]
     Active Substance: LORLATINIB
     Indication: Non-small cell lung cancer
     Dosage: 100 MG, DAILY
     Dates: start: 20210209, end: 20210625
  2. LORBRENA [Suspect]
     Active Substance: LORLATINIB
     Dosage: 100 MG, DAILY
     Dates: start: 20210719, end: 20210726

REACTIONS (2)
  - Neoplasm progression [Fatal]
  - Anaemia [Fatal]

NARRATIVE: CASE EVENT DATE: 20210528
